FAERS Safety Report 9284062 (Version 1)
Quarter: 2013Q2

REPORT INFORMATION
  Report Type: Other
  Country: TR (occurrence: TR)
  Receive Date: 20130510
  Receipt Date: 20130510
  Transmission Date: 20140414
  Serious: Yes (Death, Hospitalization, Other)
  Sender: FDA-Public Use
  Company Number: TR-BRISTOL-MYERS SQUIBB COMPANY-18856203

PATIENT
  Age: 36 Year
  Sex: Male

DRUGS (1)
  1. ENTECAVIR [Suspect]

REACTIONS (2)
  - Hepatic failure [Fatal]
  - Drug resistance [Unknown]
